FAERS Safety Report 4810892-X (Version None)
Quarter: 2005Q4

REPORT INFORMATION
  Report Type: 
  Country: None (occurrence: None)
  Receive Date: 20051025
  Receipt Date: 20051025
  Transmission Date: 20060501
  Serious: Yes (Hospitalization)
  Sender: FDA-Public Use
  Company Number: None

PATIENT
  Age: 70 Year
  Sex: Female
  Weight: 53.0709 kg

DRUGS (6)
  1. TAXOTERE [Suspect]
     Indication: BREAST CANCER METASTATIC
     Dosage: 120 MG IV Q 3 WK
     Route: 042
     Dates: start: 20050909, end: 20050930
  2. BEVACIZUMAB [Suspect]
     Indication: BREAST CANCER METASTATIC
     Dosage: 852 MG IV Q 3 WK
     Route: 042
     Dates: start: 20050909, end: 20050930
  3. ZOMETA [Concomitant]
  4. DEXAMETHASONE [Concomitant]
  5. ZOFRAN [Concomitant]
  6. PEPCID [Concomitant]

REACTIONS (5)
  - ASTHENIA [None]
  - DEHYDRATION [None]
  - HYPERCALCAEMIA [None]
  - NEUTROPENIA [None]
  - ORAL CANDIDIASIS [None]
